FAERS Safety Report 9675390 (Version 2)
Quarter: 2013Q4

REPORT INFORMATION
  Report Type: Spontaneous
  Country: US (occurrence: US)
  Receive Date: 20131107
  Receipt Date: 20131205
  Transmission Date: 20140711
  Serious: No
  Sender: FDA-Public Use
  Company Number: US-PFIZER INC-2013317641

PATIENT
  Age: 55 Year
  Sex: Female

DRUGS (3)
  1. EFFEXOR XR [Suspect]
     Indication: DEPRESSION
     Dosage: 37.5 MG, DAILY
     Dates: start: 20131102, end: 20131104
  2. INSULIN [Concomitant]
     Indication: TYPE 2 DIABETES MELLITUS
     Dosage: UNK
  3. METFORMIN ER [Concomitant]
     Indication: TYPE 2 DIABETES MELLITUS
     Dosage: (1000 MG TO 1500 MG) UNK, AS NEEDED

REACTIONS (1)
  - Flatulence [Unknown]
